FAERS Safety Report 22708917 (Version 2)
Quarter: 2024Q2

REPORT INFORMATION
  Report Type: Other
  Country: JP (occurrence: JP)
  Receive Date: 20230716
  Receipt Date: 20240424
  Transmission Date: 20240716
  Serious: Yes (Other)
  Sender: FDA-Public Use
  Company Number: JP-CHUGAI-2023025084AA

PATIENT
  Age: 72 Year
  Sex: Female

DRUGS (7)
  1. PERJETA [Suspect]
     Active Substance: PERTUZUMAB
     Indication: Breast cancer metastatic
     Dosage: STRENGTH- 420MG/14ML
     Route: 065
  2. KADCYLA [Concomitant]
     Active Substance: ADO-TRASTUZUMAB EMTANSINE
     Indication: Breast cancer metastatic
     Dosage: DOSE OF 3.6 MG/KG EVERY 3 WEEKS FOR SIX MONTHS, WITH THE LAST ADMINISTRATION HAVING OCCURRED 17 DAYS
     Route: 041
  3. ENTECAVIR [Concomitant]
     Active Substance: ENTECAVIR
     Indication: Breast cancer
     Route: 048
  4. URSODIOL [Concomitant]
     Active Substance: URSODIOL
     Route: 048
  5. CEFAZOLIN [Concomitant]
     Active Substance: CEFAZOLIN
     Route: 042
  6. CEFAZOLIN [Concomitant]
     Active Substance: CEFAZOLIN
     Dosage: CEFAZOLIN AT 6 G PER DAY FOR 26 DAYS AND CONTINUED ORAL AMOXICILLIN AT 1,000 MG PER DAY FOR 32 DAYS.
     Route: 042
  7. AMOXICILLIN [Concomitant]
     Active Substance: AMOXICILLIN
     Dosage: ORAL AMOXICILLIN AT 1,000 MG PER DAY FOR 32 DAYS.
     Route: 048

REACTIONS (2)
  - Drug hypersensitivity [Unknown]
  - Anaphylactic reaction [Unknown]
